FAERS Safety Report 8041795-8 (Version None)
Quarter: 2012Q1

REPORT INFORMATION
  Report Type: 
  Country: None (occurrence: None)
  Receive Date: 20120112
  Receipt Date: 20120103
  Transmission Date: 20120608
  Serious: Yes (Hospitalization)
  Sender: FDA-Public Use
  Company Number: US-ACTELION-A-US2011-57197

PATIENT

DRUGS (12)
  1. TRACLEER [Suspect]
     Indication: PULMONARY ARTERIAL HYPERTENSION
     Dosage: 125 MG, BID
     Route: 048
     Dates: start: 20040101
  2. TRACLEER [Suspect]
     Dosage: 31.25 MG, UNK
     Route: 048
     Dates: start: 20031121, end: 20040101
  3. VITAMIN C [Concomitant]
  4. FUROSEMIDE [Concomitant]
  5. OXYGEN [Concomitant]
  6. FOLIC ACID [Concomitant]
  7. REVATIO [Concomitant]
  8. FLOLAN [Concomitant]
  9. POLYSACCHARIDE-IRON COMPLEX [Concomitant]
  10. ZOLOFT [Concomitant]
  11. XOPENEX [Concomitant]
  12. GLEEVEC [Concomitant]

REACTIONS (5)
  - HAEMOGLOBIN DECREASED [None]
  - TOURETTE'S DISORDER [None]
  - TRANSFUSION [None]
  - TIC [None]
  - MINERAL SUPPLEMENTATION [None]
